FAERS Safety Report 5084249-3 (Version None)
Quarter: 2006Q3

REPORT INFORMATION
  Report Type: 
  Country: None (occurrence: None)
  Receive Date: 20060821
  Receipt Date: 20060502
  Transmission Date: 20061208
  Serious: No
  Sender: FDA-Public Use
  Company Number: US-BRISTOL-MYERS SQUIBB COMPANY-13364484

PATIENT
  Sex: Female
  Weight: 66 kg

DRUGS (2)
  1. TEQUIN [Suspect]
  2. ASPIRIN [Concomitant]

REACTIONS (1)
  - FEELING ABNORMAL [None]
